FAERS Safety Report 9460861 (Version 1)
Quarter: 2013Q3

REPORT INFORMATION
  Report Type: Spontaneous
  Country: US (occurrence: US)
  Receive Date: 20130816
  Receipt Date: 20130816
  Transmission Date: 20140515
  Serious: No
  Sender: FDA-Public Use
  Company Number: US-B.I. PHARMACEUTICALS,INC./RIDGEFIELD-2013-BI-23743BP

PATIENT
  Age: 74 Year
  Sex: Female

DRUGS (2)
  1. ZANTAC (RANITIDINE HYDROCHLORIDE) [Suspect]
     Indication: DYSPEPSIA
     Dosage: 150 MG
     Route: 048
     Dates: start: 20130801, end: 20130803
  2. ASPRIRN [Concomitant]
     Dosage: 81 MG
     Route: 048
     Dates: start: 2008

REACTIONS (1)
  - Drug ineffective [Recovered/Resolved]
